FAERS Safety Report 19013239 (Version 1)
Quarter: 2021Q1

REPORT INFORMATION
  Report Type: Spontaneous
  Country: US (occurrence: US)
  Receive Date: 20210316
  Receipt Date: 20210316
  Transmission Date: 20210420
  Serious: Yes (Other)
  Sender: FDA-Public Use
  Company Number: None

PATIENT
  Age: 61 Year
  Sex: Female
  Weight: 65.8 kg

DRUGS (5)
  1. CRISABOROLE OINTMENT [Concomitant]
  2. TACROLIMUS 0.1% OINTMENT [Concomitant]
     Active Substance: TACROLIMUS
  3. CYCLOSPORINE. [Concomitant]
     Active Substance: CYCLOSPORINE
  4. DUPILUMAB [Suspect]
     Active Substance: DUPILUMAB
     Indication: DERMATITIS ATOPIC
     Dosage: ?          OTHER FREQUENCY:Q14 DAYS;?
     Route: 058
     Dates: start: 20171101, end: 20180301
  5. TRIAMCINOLONE 0.1% CREAM [Concomitant]
     Active Substance: TRIAMCINOLONE ACETONIDE

REACTIONS (13)
  - Drug ineffective [None]
  - Alopecia [None]
  - Lymphadenopathy [None]
  - Rash [None]
  - Cutaneous T-cell lymphoma [None]
  - Pruritus [None]
  - Eczema [None]
  - Lung disorder [None]
  - Bronchiolitis [None]
  - Depression [None]
  - Dermatitis exfoliative generalised [None]
  - Therapy cessation [None]
  - Abscess [None]

NARRATIVE: CASE EVENT DATE: 20180201
